FAERS Safety Report 9993720 (Version 1)
Quarter: 2014Q1

REPORT INFORMATION
  Report Type: Report from Study
  Country: AU (occurrence: AU)
  Receive Date: 20140310
  Receipt Date: 20140310
  Transmission Date: 20141002
  Serious: Yes (Other)
  Sender: FDA-Public Use
  Company Number: PHHY2014AU028716

PATIENT
  Age: 63 Year
  Sex: Male

DRUGS (1)
  1. CLOZARIL [Suspect]
     Dosage: 250 MG, UNK
     Dates: start: 20060603

REACTIONS (2)
  - Pancreatic carcinoma [Unknown]
  - White blood cell count decreased [Recovered/Resolved]
